FAERS Safety Report 7413352-5 (Version None)
Quarter: 2011Q2

REPORT INFORMATION
  Report Type: 
  Country: None (occurrence: None)
  Receive Date: 20110413
  Receipt Date: 20100901
  Transmission Date: 20111010
  Serious: No
  Sender: FDA-Public Use
  Company Number: US-ASTRAZENECA-2010SE41291

PATIENT
  Sex: Female
  Weight: 74.8 kg

DRUGS (1)
  1. TENORMIN [Suspect]
     Indication: BLOOD PRESSURE
     Route: 065
     Dates: start: 20100101, end: 20100701

REACTIONS (1)
  - ALOPECIA [None]
